FAERS Safety Report 4818930-5 (Version None)
Quarter: 2005Q4

REPORT INFORMATION
  Report Type: 
  Country: None (occurrence: None)
  Receive Date: 20051102
  Receipt Date: 20051102
  Transmission Date: 20060501
  Serious: Yes (Hospitalization)
  Sender: FDA-Public Use
  Company Number: None

PATIENT
  Sex: Male
  Weight: 107.9 kg

DRUGS (3)
  1. TAXOTERE [Suspect]
     Indication: NON-SMALL CELL LUNG CANCER
     Dosage: SEE IMAGE
     Dates: start: 20051026, end: 20051026
  2. CISPLATIN [Suspect]
     Dosage: SEE IMAGE
     Dates: start: 20051026, end: 20051026
  3. DECADRON [Suspect]
     Dosage: SEE IMAGE
     Route: 048
     Dates: start: 20051026

REACTIONS (1)
  - BLOOD GLUCOSE INCREASED [None]
